FAERS Safety Report 5001582-1 (Version None)
Quarter: 2006Q2

REPORT INFORMATION
  Report Type: 
  Country: None (occurrence: None)
  Receive Date: 20060511
  Receipt Date: 20060511
  Transmission Date: 20061013
  Serious: No
  Sender: FDA-Public Use
  Company Number: None

PATIENT
  Age: 1 Year
  Sex: Female

DRUGS (1)
  1. CLINDAMYCIN PHOSPHATE [Suspect]
     Indication: ARTHRITIS BACTERIAL
     Dosage: 120MG IV Q8
     Dates: start: 20060504

REACTIONS (2)
  - CHILLS [None]
  - PYREXIA [None]
